FAERS Safety Report 15180545 (Version 1)
Quarter: 2018Q3

REPORT INFORMATION
  Report Type: Spontaneous
  Country: FR (occurrence: FR)
  Receive Date: 20180723
  Receipt Date: 20180723
  Transmission Date: 20181010
  Serious: Yes (Hospitalization)
  Sender: FDA-Public Use
  Company Number: FR-009507513-1807FRA008288

PATIENT
  Age: 45 Year
  Sex: Female

DRUGS (2)
  1. ISENTRESS [Suspect]
     Active Substance: RALTEGRAVIR POTASSIUM
     Indication: HIV INFECTION
     Dosage: 2 DF, BID
     Route: 048
  2. ISENTRESS [Suspect]
     Active Substance: RALTEGRAVIR POTASSIUM
     Indication: HIV INFECTION
     Dosage: 4 SACHETS OF 100 MG AT THE MORNING AND 4 SACHETS OF 100 MG AT THE EVENING
     Route: 048
     Dates: start: 20180309

REACTIONS (3)
  - Incorrect dosage administered [Unknown]
  - Adverse event [Unknown]
  - Dysphagia [Unknown]

NARRATIVE: CASE EVENT DATE: 201803
